FAERS Safety Report 16818730 (Version 1)
Quarter: 2019Q3

REPORT INFORMATION
  Report Type: Spontaneous
  Country: US (occurrence: US)
  Receive Date: 20190917
  Receipt Date: 20190917
  Transmission Date: 20191005
  Serious: Yes (Other)
  Sender: FDA-Public Use
  Company Number: PHHY2019US213317

PATIENT
  Age: 17 Year
  Sex: Male

DRUGS (4)
  1. BENZACLIN [Concomitant]
     Active Substance: BENZOYL PEROXIDE\CLINDAMYCIN PHOSPHATE
     Indication: ACNE
     Dosage: 5 %, QD
     Route: 061
  2. TRETINOIN. [Concomitant]
     Active Substance: TRETINOIN
     Indication: ACNE
     Dosage: 0.1 %, QD
     Route: 061
  3. MINOCYCLINE [Suspect]
     Active Substance: MINOCYCLINE HYDROCHLORIDE
     Indication: ACNE
     Dosage: 100 MG, BID
     Route: 065
  4. SULPHACETAMIDE SODIUM [Concomitant]
     Indication: ACNE
     Dosage: 5 %, QD
     Route: 065

REACTIONS (4)
  - IIIrd nerve paralysis [Unknown]
  - Diplopia [Recovered/Resolved]
  - Vasculitis [Recovered/Resolved]
  - Ischaemia [Unknown]
